FAERS Safety Report 8625447-9 (Version None)
Quarter: 2012Q3

REPORT INFORMATION
  Report Type: 
  Country: None (occurrence: None)
  Receive Date: 20120827
  Receipt Date: 20120815
  Transmission Date: 20120928
  Serious: Yes (Hospitalization)
  Sender: FDA-Public Use
  Company Number: US-MYLANLABS-2012S1016972

PATIENT
  Age: 35 Year
  Sex: Female

DRUGS (2)
  1. AMNESTEEM [Suspect]
     Dates: end: 20111201
  2. AMNESTEEM [Suspect]
     Dates: start: 20120701

REACTIONS (1)
  - HOSPITALISATION [None]
